FAERS Safety Report 8349853-5 (Version None)
Quarter: 2012Q2

REPORT INFORMATION
  Report Type: 
  Country: None (occurrence: None)
  Receive Date: 20120510
  Receipt Date: 20120418
  Transmission Date: 20120825
  Serious: Yes (Hospitalization)
  Sender: FDA-Public Use
  Company Number: NL-MEDIMMUNE-MEDI-0015176

PATIENT
  Sex: Male
  Weight: 7.2 kg

DRUGS (2)
  1. SYNAGIS [Suspect]
     Indication: TRACHEOSTOMY
     Route: 030
     Dates: start: 20110920, end: 20120209
  2. SYNAGIS [Suspect]
     Route: 030
     Dates: start: 20120309, end: 20120309

REACTIONS (1)
  - FUNCTIONAL GASTROINTESTINAL DISORDER [None]
